FAERS Safety Report 6139066-X (Version None)
Quarter: 2009Q1

REPORT INFORMATION
  Report Type: 
  Country: None (occurrence: None)
  Receive Date: 20090324
  Receipt Date: 20090313
  Transmission Date: 20090719
  Serious: Yes (Hospitalization)
  Sender: FDA-Public Use
  Company Number: 8044090

PATIENT
  Age: 44 Year
  Sex: Female
  Weight: 59 kg

DRUGS (7)
  1. KEPPRA [Suspect]
     Indication: CONVULSION
     Dosage: 2000 MG /D PO
     Route: 048
     Dates: start: 20030101, end: 20090220
  2. KEPPRA [Suspect]
     Indication: CONVULSION
     Dosage: 2000 MG /D PO
     Route: 048
     Dates: start: 20090301
  3. LEVETIRACETAM [Suspect]
     Indication: CONVULSION
     Dosage: 2000 MG /D PO
     Route: 048
     Dates: start: 20090220, end: 20090301
  4. DIOVAN [Concomitant]
  5. NORVASC [Concomitant]
  6. DIVIGEL [Concomitant]
  7. METHIMAZOLE [Concomitant]

REACTIONS (4)
  - BASEDOW'S DISEASE [None]
  - CEREBROVASCULAR ACCIDENT [None]
  - EYE DISORDER [None]
  - VISION BLURRED [None]
